FAERS Safety Report 9307668 (Version 1)
Quarter: 2013Q2

REPORT INFORMATION
  Report Type: Other
  Country: GB (occurrence: GB)
  Receive Date: 20130524
  Receipt Date: 20130524
  Transmission Date: 20140414
  Serious: Yes (Other)
  Sender: FDA-Public Use
  Company Number: GB-GLENMARK GENERICS INC.-2013GMK005753

PATIENT
  Age: 36 Year
  Sex: Female
  Weight: 72 kg

DRUGS (6)
  1. TOPIRAMATE [Suspect]
     Indication: BIPOLAR DISORDER
     Dosage: 100 MG, BID
     Route: 048
     Dates: start: 201101, end: 201305
  2. LAMOTRIGINE [Suspect]
     Indication: BIPOLAR DISORDER
     Dosage: 200 MG, BID
     Route: 048
     Dates: start: 201010
  3. CO-CODAMOL [Concomitant]
     Indication: PAIN
     Dosage: 2 DF, PRN
     Route: 048
     Dates: start: 20130315
  4. ESCITALOPRAM [Concomitant]
     Indication: BIPOLAR DISORDER
     Dosage: 20 MG, UNK
     Route: 048
     Dates: start: 20110505
  5. FEMODENE [Concomitant]
     Indication: CONTRACEPTION
     Dosage: 1 DF, OD
     Route: 048
  6. MOOD STABILIZER [Concomitant]
     Indication: BIPOLAR DISORDER
     Dosage: UNK

REACTIONS (1)
  - Vitamin D deficiency [Unknown]
